FAERS Safety Report 23776948 (Version 1)
Quarter: 2024Q2

REPORT INFORMATION
  Report Type: Spontaneous
  Country: US (occurrence: US)
  Receive Date: 20240424
  Receipt Date: 20240424
  Transmission Date: 20240716
  Serious: Yes (Hospitalization, Other)
  Sender: FDA-Public Use
  Company Number: US-NOVAST LABORATORIES INC.-2024NOV000225

PATIENT
  Age: 45 Year
  Sex: Female

DRUGS (2)
  1. OXALIPLATIN [Suspect]
     Active Substance: OXALIPLATIN
     Indication: Adenocarcinoma gastric
     Dosage: UNK
     Route: 065
  2. CAPECITABINE [Suspect]
     Active Substance: CAPECITABINE
     Indication: Adenocarcinoma gastric
     Dosage: UNK
     Route: 065

REACTIONS (4)
  - Cardiac arrest [Recovered/Resolved]
  - Cardiogenic shock [Recovered/Resolved]
  - Electrocardiogram QT prolonged [Recovered/Resolved]
  - Product use in unapproved indication [Unknown]
